FAERS Safety Report 6100770-0 (Version None)
Quarter: 2009Q1

REPORT INFORMATION
  Report Type: 
  Country: None (occurrence: None)
  Receive Date: 20090303
  Receipt Date: 20090219
  Transmission Date: 20090719
  Serious: Yes (Hospitalization, Other)
  Sender: FDA-Public Use
  Company Number: PHHY2009JP06192

PATIENT
  Age: 29 Year
  Sex: Male

DRUGS (5)
  1. GLEEVEC [Suspect]
     Indication: CHRONIC MYELOID LEUKAEMIA
     Dosage: UNK
     Route: 048
     Dates: start: 20040201
  2. GLEEVEC [Suspect]
     Dosage: 800 MG DAILY
     Route: 048
  3. GLEEVEC [Suspect]
     Dosage: 600 MG DAILY
  4. GLEEVEC [Suspect]
     Dosage: 800 MG DAILY
     Dates: start: 20071201
  5. GLEEVEC [Suspect]
     Dosage: 500 MG DAILY
     Dates: start: 20080127

REACTIONS (8)
  - CONDITION AGGRAVATED [None]
  - INTRA-ABDOMINAL HAEMORRHAGE [None]
  - LYMPHADENOPATHY [None]
  - PLATELET COUNT DECREASED [None]
  - SPLENECTOMY [None]
  - SPLENIC RUPTURE [None]
  - TUMOUR LYSIS SYNDROME [None]
  - WHITE BLOOD CELL COUNT INCREASED [None]
